FAERS Safety Report 6447784-9 (Version None)
Quarter: 2009Q4

REPORT INFORMATION
  Report Type: 
  Country: None (occurrence: None)
  Receive Date: 20091120
  Receipt Date: 20091118
  Transmission Date: 20100525
  Serious: Yes (Hospitalization)
  Sender: FDA-Public Use
  Company Number: FR-TEVA-186336ISR

PATIENT

DRUGS (5)
  1. FLUOROURACIL [Suspect]
     Indication: COLORECTAL CANCER
     Route: 041
     Dates: start: 20080102, end: 20080430
  2. FLUOROURACIL [Suspect]
     Route: 040
     Dates: start: 20080102, end: 20080428
  3. IRINOTECAN HYDROCHLORIDE [Suspect]
     Indication: COLORECTAL CANCER
     Route: 042
     Dates: start: 20080428, end: 20080428
  4. BEVACIZUMAB [Suspect]
     Indication: COLORECTAL CANCER
     Route: 042
     Dates: start: 20080102, end: 20080428
  5. FOLINIC ACID [Suspect]
     Indication: COLORECTAL CANCER
     Dates: start: 20080102, end: 20080428

REACTIONS (1)
  - ANAL ABSCESS [None]
